FAERS Safety Report 25746517 (Version 3)
Quarter: 2025Q3

REPORT INFORMATION
  Report Type: Spontaneous
  Country: US (occurrence: US)
  Receive Date: 20250901
  Receipt Date: 20250905
  Transmission Date: 20251020
  Serious: No
  Sender: Haleon PLC
  Company Number: US-HALEON-2260534

PATIENT
  Age: 29 Year
  Sex: Female

DRUGS (2)
  1. ALLI [Suspect]
     Active Substance: ORLISTAT
     Indication: Weight control
  2. ALLI [Suspect]
     Active Substance: ORLISTAT

REACTIONS (1)
  - Drug ineffective [Unknown]
